FAERS Safety Report 9698166 (Version 1)
Quarter: 2013Q4

REPORT INFORMATION
  Report Type: Spontaneous
  Country: US (occurrence: None)
  Receive Date: 20131114
  Receipt Date: 20131114
  Transmission Date: 20140711
  Serious: Yes (Other)
  Sender: FDA-Public Use
  Company Number: 2013038907

PATIENT
  Age: 57 Year
  Sex: Female

DRUGS (1)
  1. ZEMAIRA [Suspect]
     Dosage: (INTRAVENOUS (NOT OTHERWISE SPECIFIED) )
     Route: 042

REACTIONS (1)
  - Respiratory tract infection [None]
